FAERS Safety Report 7971895-X (Version None)
Quarter: 2011Q4

REPORT INFORMATION
  Report Type: 
  Country: None (occurrence: None)
  Receive Date: 20111212
  Receipt Date: 20111202
  Transmission Date: 20120403
  Serious: Yes (Other)
  Sender: FDA-Public Use
  Company Number: PHHY2011AR106256

PATIENT
  Sex: Female

DRUGS (1)
  1. EXFORGE [Suspect]
     Indication: ARRHYTHMIA
     Dosage: 1 DF, (80/5MG) DAILY
     Dates: start: 20110501

REACTIONS (3)
  - PNEUMONIA [None]
  - ASTHENIA [None]
  - DEPRESSION [None]
